FAERS Safety Report 7976567-3 (Version None)
Quarter: 2011Q4

REPORT INFORMATION
  Report Type: 
  Country: None (occurrence: None)
  Receive Date: 20111213
  Receipt Date: 20111027
  Transmission Date: 20120403
  Serious: No
  Sender: FDA-Public Use
  Company Number: US-AMGEN-USASP2011055740

PATIENT
  Age: 55 Year
  Sex: Male

DRUGS (1)
  1. ENBREL [Suspect]
     Indication: PSORIASIS
     Dosage: 50 MG, QWK
     Dates: start: 20070401

REACTIONS (4)
  - RED CELL DISTRIBUTION WIDTH ABNORMAL [None]
  - HAEMOGLOBIN ABNORMAL [None]
  - BLOOD IRON ABNORMAL [None]
  - SERUM FERRITIN ABNORMAL [None]
